FAERS Safety Report 8831343 (Version 5)
Quarter: 2013Q1

REPORT INFORMATION
  Report Type: Spontaneous
  Country: US (occurrence: US)
  Receive Date: 20121009
  Receipt Date: 20130312
  Transmission Date: 20140127
  Serious: No
  Sender: FDA-Public Use
  Company Number: US-BAYER-2012-102913

PATIENT
  Age: 44 Year
  Sex: Female
  Weight: 88.98 kg

DRUGS (8)
  1. YAZ [Suspect]
  2. YASMIN [Suspect]
     Indication: PAIN PROPHYLAXIS
     Dosage: UNK
     Dates: start: 2005, end: 2010
  3. YASMIN [Suspect]
     Indication: MENORRHAGIA
  4. OCELLA [Suspect]
     Dosage: UNK
     Dates: start: 200808, end: 200906
  5. AMBIRIX [Concomitant]
  6. AMBIEN CR [Concomitant]
  7. FISH OIL [Concomitant]
  8. TRI-SPRINTEC [Concomitant]

REACTIONS (21)
  - Paraesthesia [Recovered/Resolved]
  - Local swelling [Not Recovered/Not Resolved]
  - Musculoskeletal pain [Not Recovered/Not Resolved]
  - Arthralgia [Not Recovered/Not Resolved]
  - Inflammation [Not Recovered/Not Resolved]
  - Panic attack [Recovered/Resolved]
  - Lactose intolerance [None]
  - Hypertension [Not Recovered/Not Resolved]
  - Insomnia [Not Recovered/Not Resolved]
  - Pain in extremity [None]
  - Vomiting [None]
  - Heart rate increased [None]
  - Dyspnoea [None]
  - Fatigue [None]
  - Vitamin D decreased [None]
  - Pain [Not Recovered/Not Resolved]
  - Inflammation [None]
  - Anxiety [Not Recovered/Not Resolved]
  - Injury [None]
  - Back pain [None]
  - Off label use [None]
